FAERS Safety Report 22121475 (Version 5)
Quarter: 2024Q2

REPORT INFORMATION
  Report Type: Spontaneous
  Country: US (occurrence: US)
  Receive Date: 20230321
  Receipt Date: 20240531
  Transmission Date: 20240716
  Serious: Yes (Hospitalization, Other)
  Sender: FDA-Public Use
  Company Number: US-002147023-NVSC2023US063218

PATIENT
  Age: 68 Year
  Sex: Female

DRUGS (3)
  1. MEKINIST [Suspect]
     Active Substance: TRAMETINIB DIMETHYL SULFOXIDE
     Indication: Ovarian cancer
     Dosage: 2 MG, QD (STRENGTH: 2 MG)
     Route: 048
     Dates: start: 20221024
  2. MEKINIST [Suspect]
     Active Substance: TRAMETINIB DIMETHYL SULFOXIDE
     Dosage: 2 MG, QD (AT BED TIME)
     Route: 048
     Dates: start: 20221109
  3. MEKINIST [Suspect]
     Active Substance: TRAMETINIB DIMETHYL SULFOXIDE
     Dosage: 1 MG, TID (STRENGTH: 0.5 MG, ROUTE: BY MOUTH)
     Route: 048
     Dates: start: 202211

REACTIONS (6)
  - Intestinal obstruction [Unknown]
  - Fatigue [Recovering/Resolving]
  - Neuropathy peripheral [Unknown]
  - Photopsia [Unknown]
  - Vitreous floaters [Unknown]
  - Product use in unapproved indication [Unknown]

NARRATIVE: CASE EVENT DATE: 20221024
